FAERS Safety Report 7093943-4 (Version None)
Quarter: 2010Q4

REPORT INFORMATION
  Report Type: 
  Country: None (occurrence: None)
  Receive Date: 20101110
  Receipt Date: 20101027
  Transmission Date: 20110411
  Serious: Yes (Other)
  Sender: FDA-Public Use
  Company Number: JP-ACTELION-A-CH2010-41083

PATIENT
  Age: 25 Year
  Sex: Female

DRUGS (2)
  1. TRACLEER [Suspect]
     Indication: PULMONARY ARTERIAL HYPERTENSION
     Dosage: UNK , UNK
     Route: 048
  2. BERAPROST [Concomitant]

REACTIONS (5)
  - BRAIN NATRIURETIC PEPTIDE INCREASED [None]
  - CHEST DISCOMFORT [None]
  - CONDITION AGGRAVATED [None]
  - LUPUS NEPHRITIS [None]
  - PULMONARY ARTERIAL HYPERTENSION [None]
